FAERS Safety Report 8287108-8 (Version None)
Quarter: 2012Q2

REPORT INFORMATION
  Report Type: 
  Country: None (occurrence: None)
  Receive Date: 20120416
  Receipt Date: 20120406
  Transmission Date: 20120825
  Serious: Yes (Hospitalization)
  Sender: FDA-Public Use
  Company Number: US-BAYER-2012-033944

PATIENT
  Age: 34 Year
  Sex: Female

DRUGS (7)
  1. YASMIN [Suspect]
     Indication: CONTRACEPTION
  2. BENICAR [Concomitant]
     Indication: HYPERTENSION
     Dosage: 20 -12.5 MG
     Dates: start: 20050114, end: 20060807
  3. NAPROXEN [Concomitant]
     Dosage: 375 MG, UNK
     Dates: start: 20060724
  4. CYCLOBENZAPRINE HYDROCHLORIDE [Concomitant]
     Dosage: 5 MG, UNK
     Dates: start: 20060807
  5. BENICAR [Concomitant]
     Dosage: 20 -12.5 MG
  6. CEFUROXIME AXETIL [Concomitant]
     Dosage: 250 MG, UNK
     Dates: start: 20060724
  7. IBUPROFEN [Concomitant]
     Dosage: 600 MG, UNK
     Dates: start: 20060807

REACTIONS (1)
  - DEEP VEIN THROMBOSIS [None]
